FAERS Safety Report 4804447-0 (Version None)
Quarter: 2005Q4

REPORT INFORMATION
  Report Type: 
  Country: None (occurrence: None)
  Receive Date: 20051020
  Receipt Date: 20051012
  Transmission Date: 20060501
  Serious: Yes (Other)
  Sender: FDA-Public Use
  Company Number: 2005SE05777

PATIENT
  Age: 26596 Day
  Sex: Male
  Weight: 82 kg

DRUGS (4)
  1. COKENZEN 16/12.5 [Suspect]
     Indication: HYPERTENSION
     Dosage: 16 MG+12.5 MG
     Route: 048
     Dates: start: 20050310, end: 20050610
  2. CARTREX [Concomitant]
     Indication: DRUG USE FOR UNKNOWN INDICATION
     Route: 048
     Dates: end: 20050401
  3. DILTIAZEM HYDROCHLORIDE [Concomitant]
     Indication: HYPERTENSION
     Route: 048
  4. EQUANIL [Concomitant]
     Indication: ANXIETY
     Route: 048

REACTIONS (3)
  - NECROSIS [None]
  - PAIN [None]
  - SKIN NECROSIS [None]
